FAERS Safety Report 17077659 (Version 6)
Quarter: 2019Q4

REPORT INFORMATION
  Report Type: Report from Study
  Country: PL (occurrence: PL)
  Receive Date: 20191126
  Receipt Date: 20191220
  Transmission Date: 20200122
  Serious: Yes (Death, Hospitalization)
  Sender: FDA-Public Use
  Company Number: PL-REGENERON PHARMACEUTICALS, INC.-2019-67797

PATIENT

DRUGS (11)
  1. LOPERAMID [Concomitant]
     Active Substance: LOPERAMIDE
     Indication: DIARRHOEA
     Dosage: 2 MG, AS NECESSARY
     Route: 048
     Dates: start: 20190930
  2. HEPATIL [Concomitant]
     Indication: ASPARTATE AMINOTRANSFERASE INCREASED
     Dosage: 1 TABLET, TID
     Route: 048
     Dates: start: 20191021, end: 20191101
  3. GASTROLIT                          /01529101/ [Concomitant]
     Indication: DIARRHOEA
     Dosage: 1 SACHET, QOD
     Route: 048
     Dates: start: 20190930
  4. CEMIPLIMAB [Suspect]
     Active Substance: CEMIPLIMAB
     Indication: LUNG SQUAMOUS CELL CARCINOMA STAGE IV
     Dosage: 350 MG, Q3W
     Route: 042
     Dates: start: 20180507
  5. PROSTAMNIC [Concomitant]
     Indication: BENIGN PROSTATIC HYPERPLASIA
     Dosage: 0.4 MG, QD
     Route: 048
     Dates: start: 2016
  6. GASTROLIT                          /01529101/ [Concomitant]
     Indication: PROPHYLAXIS
     Dosage: 1SACHET, AS NECESSARY
     Route: 048
     Dates: start: 20190828
  7. AGEN [Concomitant]
     Active Substance: AMLODIPINE BESYLATE
     Indication: HYPERTENSION
     Dosage: 5 MG, BID
     Route: 048
     Dates: start: 2016
  8. GLUCOPHAGE [Concomitant]
     Active Substance: METFORMIN HYDROCHLORIDE
     Indication: TYPE 2 DIABETES MELLITUS
     Dosage: 750 MG, QD
     Route: 048
     Dates: start: 2016
  9. FINASTERIDE. [Concomitant]
     Active Substance: FINASTERIDE
     Indication: BENIGN PROSTATIC HYPERPLASIA
     Dosage: 5 MG, QD
     Route: 048
     Dates: start: 2016
  10. ENTEROL                            /00081601/ [Concomitant]
     Active Substance: FURAZOLIDONE
     Indication: DIARRHOEA
     Dosage: 250 MG, QD
     Route: 048
     Dates: start: 20190618
  11. REASEC [Concomitant]
     Active Substance: ATROPINE SULFATE\DIPHENOXYLATE HYDROCHLORIDE
     Indication: DIARRHOEA
     Dosage: 2.5/0.025MG, AS NECESSARY
     Route: 048
     Dates: start: 20190930

REACTIONS (3)
  - Dyspnoea [Recovered/Resolved]
  - Cardiopulmonary failure [Fatal]
  - Interstitial lung disease [Recovered/Resolved]

NARRATIVE: CASE EVENT DATE: 20191120
